FAERS Safety Report 14658667 (Version 1)
Quarter: 2018Q1

REPORT INFORMATION
  Report Type: Spontaneous
  Country: US (occurrence: US)
  Receive Date: 20180320
  Receipt Date: 20180320
  Transmission Date: 20180509
  Serious: No
  Sender: FDA-Public Use
  Company Number: US-ALVOGEN-2018-ALVOGEN-094710

PATIENT
  Age: 75 Year
  Sex: Male

DRUGS (1)
  1. RIVASTIGMINE. [Suspect]
     Active Substance: RIVASTIGMINE
     Indication: PRODUCT USED FOR UNKNOWN INDICATION
     Dates: start: 20171015

REACTIONS (2)
  - Administration site erythema [Not Recovered/Not Resolved]
  - Administration site pruritus [Not Recovered/Not Resolved]

NARRATIVE: CASE EVENT DATE: 201712
